FAERS Safety Report 26028709 (Version 2)
Quarter: 2025Q4

REPORT INFORMATION
  Report Type: Spontaneous
  Country: JP (occurrence: JP)
  Receive Date: 20251111
  Receipt Date: 20251121
  Transmission Date: 20260118
  Serious: Yes (Hospitalization, Other)
  Sender: BOEHRINGER INGELHEIM
  Company Number: JP-NBI-2025-BI-105558

PATIENT
  Age: 77 Year
  Sex: Male

DRUGS (4)
  1. OFEV [Suspect]
     Active Substance: NINTEDANIB
     Indication: Interstitial lung disease
  2. PREDONINE [Concomitant]
     Active Substance: PREDNISOLONE
     Indication: Interstitial lung disease
  3. PREDONINE [Concomitant]
     Active Substance: PREDNISOLONE
  4. PREDONINE [Concomitant]
     Active Substance: PREDNISOLONE
     Dosage: FURTHER DOSE REDUCTION

REACTIONS (3)
  - Loss of consciousness [Unknown]
  - Burns third degree [Recovered/Resolved]
  - Impaired healing [Recovered/Resolved]
